FAERS Safety Report 12780147 (Version 1)
Quarter: 2016Q3

REPORT INFORMATION
  Report Type: Spontaneous
  Country: BR (occurrence: BR)
  Receive Date: 20160926
  Receipt Date: 20160926
  Transmission Date: 20161109
  Serious: Yes (Other)
  Sender: FDA-Public Use
  Company Number: BR-GLAXOSMITHKLINE-BR2016GSK139157

PATIENT
  Age: 67 Year
  Sex: Female
  Weight: 90 kg

DRUGS (10)
  1. CAPTOPRIL. [Concomitant]
     Active Substance: CAPTOPRIL
     Indication: HYPERTENSION
     Dosage: 1 UNK, TID
     Route: 048
  2. OMEPRAZOLE. [Concomitant]
     Active Substance: OMEPRAZOLE
     Indication: HIATUS HERNIA
  3. TANDRILAX [Concomitant]
     Active Substance: ACETAMINOPHEN\CAFFEINE\CARISOPRODOL\DICLOFENAC SODIUM
     Indication: PAIN
     Dosage: 1 UNK, WE
     Route: 048
  4. SERTRALINE [Concomitant]
     Active Substance: SERTRALINE HYDROCHLORIDE
     Indication: DEPRESSION
     Dosage: 100 MG, QD
     Route: 048
  5. CEFALIV [Concomitant]
     Indication: HEADACHE
     Dosage: 1 UNK, TID
     Route: 048
  6. OMEPRAZOLE. [Concomitant]
     Active Substance: OMEPRAZOLE
     Indication: GASTRIC ULCER
     Dosage: 1 UNK, QD
     Route: 048
  7. DIENPAX [Concomitant]
     Active Substance: DIAZEPAM
     Indication: SEDATIVE THERAPY
     Dosage: 1 UNK, QD
     Route: 048
  8. SERETIDE [Suspect]
     Active Substance: FLUTICASONE PROPIONATE\SALMETEROL XINAFOATE
     Indication: EMPHYSEMA
     Dosage: 2 UNK, BID
     Route: 055
  9. BAMIFYLLINE HYDROCHLORIDE [Suspect]
     Active Substance: BAMIFYLLINE HYDROCHLORIDE
     Indication: EMPHYSEMA
     Dosage: 2 UNK, QD
     Route: 048
  10. AMLODIPINE BESYLATE. [Concomitant]
     Active Substance: AMLODIPINE BESYLATE
     Indication: HYPERTENSION
     Dosage: 1 UNK, QD
     Route: 048

REACTIONS (7)
  - Pain [Recovered/Resolved]
  - Cataract [Not Recovered/Not Resolved]
  - Cholelithiasis [Recovered/Resolved]
  - Product use issue [Unknown]
  - Benign uterine neoplasm [Recovered/Resolved]
  - Off label use [Unknown]
  - Headache [Recovered/Resolved]

NARRATIVE: CASE EVENT DATE: 20160913
